FAERS Safety Report 7647541-1 (Version None)
Quarter: 2011Q3

REPORT INFORMATION
  Report Type: 
  Country: None (occurrence: None)
  Receive Date: 20110801
  Receipt Date: 20110728
  Transmission Date: 20111222
  Serious: Yes (Hospitalization)
  Sender: FDA-Public Use
  Company Number: FR-GLAXOSMITHKLINE-B0735500A

PATIENT
  Sex: Male

DRUGS (2)
  1. AMOXICILLIN AND CLAVULANATE POTASSIUM [Suspect]
     Indication: SEPTIC SHOCK
     Dosage: 5G THREE TIMES PER DAY
     Route: 042
     Dates: start: 20110610
  2. CLINDAMYCIN HCL [Suspect]
     Indication: SEPTIC SHOCK
     Route: 042
     Dates: start: 20110608

REACTIONS (2)
  - TRANSAMINASES INCREASED [None]
  - LIVER FUNCTION TEST ABNORMAL [None]
